FAERS Safety Report 15394807 (Version 1)
Quarter: 2018Q3

REPORT INFORMATION
  Report Type: Spontaneous
  Country: GR (occurrence: GR)
  Receive Date: 20180918
  Receipt Date: 20180918
  Transmission Date: 20181010
  Serious: Yes (Other)
  Sender: FDA-Public Use
  Company Number: GR-ROCHE-2186134

PATIENT
  Sex: Female

DRUGS (2)
  1. CORTISONE [Concomitant]
     Active Substance: CORTISONE\HYDROCORTISONE
     Indication: PRODUCT USED FOR UNKNOWN INDICATION
     Route: 048
  2. XOLAIR [Suspect]
     Active Substance: OMALIZUMAB
     Indication: CHRONIC SPONTANEOUS URTICARIA
     Dosage: UNK
     Route: 065
     Dates: start: 20180907

REACTIONS (1)
  - Generalised erythema [Unknown]
